FAERS Safety Report 16128597 (Version 1)
Quarter: 2019Q1

REPORT INFORMATION
  Report Type: Spontaneous
  Country: US (occurrence: US)
  Receive Date: 20190328
  Receipt Date: 20190328
  Transmission Date: 20190418
  Serious: No
  Sender: FDA-Public Use
  Company Number: US-AKRON, INC.-2064824

PATIENT
  Sex: Female

DRUGS (1)
  1. LORAZEPAM ORAL CONCENTRATE [Suspect]
     Active Substance: LORAZEPAM
     Route: 048

REACTIONS (1)
  - Drug ineffective [Unknown]
